FAERS Safety Report 5022814-X (Version None)
Quarter: 2006Q2

REPORT INFORMATION
  Report Type: 
  Country: None (occurrence: None)
  Receive Date: 20060426
  Receipt Date: 20060201
  Transmission Date: 20061013
  Serious: Yes (Other)
  Sender: FDA-Public Use
  Company Number: 2005169334

PATIENT
  Sex: Female
  Weight: 56.6996 kg

DRUGS (2)
  1. LYRICA [Suspect]
     Indication: COMPLEX PARTIAL SEIZURES
     Dosage: (50 MG), ORAL
     Route: 048
     Dates: start: 20060112, end: 20060113
  2. KLONOPIN [Concomitant]

REACTIONS (7)
  - AGGRESSION [None]
  - ANXIETY [None]
  - BURNOUT SYNDROME [None]
  - DELUSIONAL DISORDER, PERSECUTORY TYPE [None]
  - DISORIENTATION [None]
  - HALLUCINATION [None]
  - UNEVALUABLE EVENT [None]
